FAERS Safety Report 9347298 (Version 1)
Quarter: 2013Q2

REPORT INFORMATION
  Report Type: Spontaneous
  Country: PH (occurrence: PH)
  Receive Date: 20130613
  Receipt Date: 20130613
  Transmission Date: 20140414
  Serious: Yes (Death)
  Sender: FDA-Public Use
  Company Number: PH-BAXTER-2013BAX021592

PATIENT
  Age: 5 Year
  Sex: Male

DRUGS (1)
  1. DIANEAL PD2 WITH 4.25% DEXTROSE [Suspect]
     Indication: PERITONEAL DIALYSIS
     Route: 033
     Dates: start: 20130605, end: 20130605

REACTIONS (3)
  - Cardio-respiratory arrest [Fatal]
  - Ventricular tachycardia [Fatal]
  - Multi-organ failure [Fatal]
